FAERS Safety Report 12457764 (Version 1)
Quarter: 2016Q2

REPORT INFORMATION
  Report Type: Report from Study
  Country: CA (occurrence: CA)
  Receive Date: 20160611
  Receipt Date: 20160611
  Transmission Date: 20160815
  Serious: Yes (Other)
  Sender: FDA-Public Use
  Company Number: CA-AMGEN-CANSP2015030362

PATIENT
  Age: 56 Year
  Sex: Female
  Weight: 34.14 kg

DRUGS (2)
  1. CALCIUM WITH VITAMIN D             /00944201/ [Concomitant]
     Active Substance: CALCIUM CARBONATE\CHOLECALCIFEROL
  2. PROLIA [Suspect]
     Active Substance: DENOSUMAB
     Indication: OSTEOPOROSIS POSTMENOPAUSAL
     Dosage: 60MG, Q6MO
     Route: 058
     Dates: start: 20120924

REACTIONS (4)
  - Tooth extraction [Recovering/Resolving]
  - Ostectomy [Unknown]
  - Impaired healing [Recovering/Resolving]
  - Tooth disorder [Unknown]

NARRATIVE: CASE EVENT DATE: 201409
